FAERS Safety Report 8321362-9 (Version None)
Quarter: 2012Q2

REPORT INFORMATION
  Report Type: 
  Country: None (occurrence: None)
  Receive Date: 20120430
  Receipt Date: 20120423
  Transmission Date: 20120825
  Serious: Yes (Other)
  Sender: FDA-Public Use
  Company Number: PHHY2012SE034717

PATIENT
  Sex: Male

DRUGS (6)
  1. NOVORAPID [Concomitant]
  2. ENALAPRIL COMP SANDOZ [Suspect]
     Indication: HYPERTONIA
     Dosage: 1 DF, QD
     Route: 048
  3. LANTUS [Concomitant]
  4. ASPIRIN [Concomitant]
  5. SIMVASTATIN [Concomitant]
  6. NASONEX [Suspect]
     Indication: ACUTE SINUSITIS
     Dates: start: 20120220, end: 20120220

REACTIONS (12)
  - ERYTHEMA [None]
  - OTORRHOEA [None]
  - BLOOD GLUCOSE DECREASED [None]
  - DANDRUFF [None]
  - AURICULAR SWELLING [None]
  - PYREXIA [None]
  - EYE SWELLING [None]
  - MALAISE [None]
  - INFECTION [None]
  - SKIN ULCER [None]
  - ANGIOEDEMA [None]
  - SWELLING FACE [None]
